FAERS Safety Report 18604440 (Version 1)
Quarter: 2020Q4

REPORT INFORMATION
  Report Type: Spontaneous
  Country: US (occurrence: US)
  Receive Date: 20201121
  Receipt Date: 20201121
  Transmission Date: 20210114
  Serious: Yes (Death)
  Sender: FDA-Public Use
  Company Number: None

PATIENT
  Age: 5 Decade
  Sex: Male

DRUGS (3)
  1. HYDROXYCHLOROQUINE [Suspect]
     Active Substance: HYDROXYCHLOROQUINE
  2. TOCILIZUMAB. [Suspect]
     Active Substance: TOCILIZUMAB
  3. METHYLPREDNISOLONE. [Suspect]
     Active Substance: METHYLPREDNISOLONE

REACTIONS (6)
  - Acute kidney injury [None]
  - Renal transplant [None]
  - Immunosuppression [None]
  - Respiratory distress [None]
  - Off label use [None]
  - Haemodialysis [None]
